FAERS Safety Report 6265978-2 (Version None)
Quarter: 2009Q3

REPORT INFORMATION
  Report Type: 
  Country: None (occurrence: None)
  Receive Date: 20090709
  Receipt Date: 20090709
  Transmission Date: 20100115
  Serious: Yes (Other)
  Sender: FDA-Public Use
  Company Number: None

PATIENT
  Sex: Female
  Weight: 90.2658 kg

DRUGS (1)
  1. NASONEX [Suspect]
     Indication: EAR CONGESTION
     Dosage: 2 SPRAYS IN EACH NOSTRIL EVERY DAY NASAL
     Route: 045
     Dates: start: 20090519, end: 20090707

REACTIONS (3)
  - CHEST DISCOMFORT [None]
  - MYOCARDIAL INFARCTION [None]
  - PAIN [None]
